FAERS Safety Report 11934049 (Version 1)
Quarter: 2016Q1

REPORT INFORMATION
  Report Type: Spontaneous
  Country: US (occurrence: None)
  Receive Date: 20160120
  Receipt Date: 20160120
  Transmission Date: 20160526
  Serious: No
  Sender: FDA-Public Use
  Company Number: None

PATIENT
  Age: 57 Year
  Sex: Female

DRUGS (4)
  1. GLEEVEC [Suspect]
     Active Substance: IMATINIB MESYLATE
     Indication: CARCINOID TUMOUR OF THE STOMACH
     Route: 048
     Dates: start: 201512
  2. TRAMADOL. [Concomitant]
     Active Substance: TRAMADOL
  3. ONDANSETRON [Concomitant]
     Active Substance: ONDANSETRON
  4. CYCLOBENZAPR [Concomitant]

REACTIONS (2)
  - Drug dose omission [None]
  - Nausea [None]
